FAERS Safety Report 12108978 (Version 1)
Quarter: 2016Q1

REPORT INFORMATION
  Report Type: Spontaneous
  Country: CA (occurrence: CA)
  Receive Date: 20160224
  Receipt Date: 20160224
  Transmission Date: 20160526
  Serious: Yes (Hospitalization)
  Sender: FDA-Public Use
  Company Number: CA-B.I. PHARMACEUTICALS,INC./RIDGEFIELD-2016-BI-10169BI

PATIENT
  Age: 62 Year
  Sex: Male

DRUGS (1)
  1. PRADAXA [Suspect]
     Active Substance: DABIGATRAN ETEXILATE MESYLATE
     Indication: ANTICOAGULANT THERAPY
     Dosage: 220 MG
     Route: 048

REACTIONS (8)
  - Gastrointestinal haemorrhage [Recovered/Resolved]
  - Shock [Unknown]
  - Pulmonary haemorrhage [Recovered/Resolved]
  - Haematemesis [Recovered/Resolved]
  - Haematuria [Recovered/Resolved]
  - Cardiac arrest [Unknown]
  - Overdose [Unknown]
  - Acute kidney injury [Not Recovered/Not Resolved]
